FAERS Safety Report 8395707-8 (Version None)
Quarter: 2012Q2

REPORT INFORMATION
  Report Type: 
  Country: None (occurrence: None)
  Receive Date: 20120530
  Receipt Date: 20120329
  Transmission Date: 20120825
  Serious: No
  Sender: FDA-Public Use
  Company Number: US-GLAXOSMITHKLINE-A0972219A

PATIENT
  Age: 43 Year
  Sex: Male

DRUGS (2)
  1. VENTOLIN [Suspect]
     Dosage: 90MCG UNKNOWN
     Route: 055
  2. CONCURRENT MEDICATIONS [Concomitant]

REACTIONS (2)
  - DRUG ADMINISTRATION ERROR [None]
  - INHALATION THERAPY [None]
